FAERS Safety Report 9060436 (Version 1)
Quarter: 2013Q1

REPORT INFORMATION
  Report Type: Spontaneous
  Country: US (occurrence: US)
  Receive Date: 20130212
  Receipt Date: 20130212
  Transmission Date: 20140127
  Serious: Yes (Hospitalization)
  Sender: FDA-Public Use
  Company Number: US-BAYER-2013-014291

PATIENT
  Sex: Male

DRUGS (4)
  1. BAYER GENUINE ASPIRIN ORIGINAL STRENGTH [Suspect]
     Indication: CORONARY ARTERY DISEASE
     Dosage: UNK
  2. ADVIL [Suspect]
     Indication: BACK PAIN
     Dosage: UNK
     Route: 048
     Dates: end: 20121125
  3. NAPROSYN [Suspect]
  4. PRASUGREL [Suspect]

REACTIONS (1)
  - Melaena [Recovered/Resolved]
